FAERS Safety Report 22524438 (Version 1)
Quarter: 2023Q2

REPORT INFORMATION
  Report Type: Report from Study
  Country: CA (occurrence: CA)
  Receive Date: 20230606
  Receipt Date: 20230606
  Transmission Date: 20230721
  Serious: Yes (Death)
  Sender: FDA-Public Use
  Company Number: CA-BAYER-2023A077808

PATIENT
  Age: 72 Year
  Sex: Female

DRUGS (2)
  1. EYLEA [Suspect]
     Active Substance: AFLIBERCEPT
     Indication: Age-related macular degeneration
     Dosage: UNK; SOLUTION FOR INJECTION; STRENGTH: 40 MG/ML
     Dates: start: 20210901, end: 20210901
  2. EYLEA [Suspect]
     Active Substance: AFLIBERCEPT
     Dosage: UNK; SOLUTION FOR INJECTION; STRENGTH: 40 MG/ML
     Dates: start: 20230222, end: 20230222

REACTIONS (1)
  - Death [Fatal]

NARRATIVE: CASE EVENT DATE: 20230503
